FAERS Safety Report 7034666-7 (Version None)
Quarter: 2010Q4

REPORT INFORMATION
  Report Type: 
  Country: None (occurrence: None)
  Receive Date: 20101008
  Receipt Date: 20100927
  Transmission Date: 20110411
  Serious: Yes (Hospitalization)
  Sender: FDA-Public Use
  Company Number: FR-WYE-H17991410

PATIENT
  Sex: Female

DRUGS (9)
  1. INIPOMP [Suspect]
     Route: 048
     Dates: end: 20100814
  2. FUROSEMIDE [Suspect]
     Route: 048
     Dates: end: 20100814
  3. HEPTAMINOL HYDROCHLORIDE [Concomitant]
     Dosage: 187.8 MG, UNSPECIFIED FREQUENCY
  4. DIFFU K [Concomitant]
     Dosage: UNKNOWN
  5. BIPERIDYS [Concomitant]
     Dosage: UNKNOWN
  6. LEVOTHYROXINE SODIUM [Concomitant]
     Dosage: UNKNOWN
  7. AMIODARONE [Concomitant]
     Dosage: UNKNOWN
  8. PAROXETINE HCL [Suspect]
     Route: 048
     Dates: end: 20100814
  9. KARDEGIC [Concomitant]
     Dosage: 160 MG, UNSPECIFIED FREQUENCY

REACTIONS (1)
  - HYPONATRAEMIA [None]
